FAERS Safety Report 11058784 (Version 2)
Quarter: 2015Q2

REPORT INFORMATION
  Report Type: Spontaneous
  Country: AT (occurrence: None)
  Receive Date: 20150421
  Receipt Date: 20150427
  Transmission Date: 20150821
  Serious: Yes (Other)
  Sender: FDA-Public Use
  Company Number: AT2015GSK052433

PATIENT
  Age: 61 Year
  Sex: Male
  Weight: 88 kg

DRUGS (13)
  1. BLOPRESS (CANDESARTAN CILEXETIL) [Concomitant]
     Active Substance: CANDESARTAN CILEXETIL
  2. KIVEXA (ABACAVIR SULPHATE, LAMIVUDINE) [Concomitant]
  3. ISENTRESS [Concomitant]
     Active Substance: RALTEGRAVIR POTASSIUM
  4. LANTUS OPTIPEN (INTERMEDIATE/LONG-ACTING INSULIN) [Concomitant]
  5. DOXAZOSIN [Concomitant]
     Active Substance: DOXAZOSIN\DOXAZOSIN MESYLATE
  6. NOMEXOR PLUS HCT (HYDROCHLOROTHIAZIDE + NEBIVOLOL HYDROCHLORIDE) [Concomitant]
  7. THROMBOSTAD (ACETYLSALICYLIC ACID) [Concomitant]
  8. ZYRTEC [Concomitant]
     Active Substance: CETIRIZINE HYDROCHLORIDE
  9. CRESTOR [Concomitant]
     Active Substance: ROSUVASTATIN CALCIUM
  10. TIVICAY [Suspect]
     Active Substance: DOLUTEGRAVIR SODIUM
     Indication: HIV TEST POSITIVE
     Dosage: 50 MG, 1D, ORAL
     Route: 048
     Dates: start: 20150201, end: 20150331
  11. GLUCOPHAGE [Concomitant]
     Active Substance: METFORMIN HYDROCHLORIDE
  12. ADENURIC (FEBUXOSTAT) [Concomitant]
     Active Substance: FEBUXOSTAT
  13. DAXAS (ROFLUMILAST) [Concomitant]

REACTIONS (12)
  - Drug ineffective [None]
  - Thirst [None]
  - Dyspnoea [None]
  - Dyspnoea exertional [None]
  - Dry throat [None]
  - Oedema peripheral [None]
  - Fatigue [None]
  - Dry mouth [None]
  - Hypertension [None]
  - Hyperglycaemia [None]
  - Headache [None]
  - Rheumatic disorder [None]

NARRATIVE: CASE EVENT DATE: 20150317
